FAERS Safety Report 9405730 (Version 2)
Quarter: 2013Q3

REPORT INFORMATION
  Report Type: Spontaneous
  Country: DE (occurrence: DE)
  Receive Date: 20130717
  Receipt Date: 20130725
  Transmission Date: 20140515
  Serious: Yes (Hospitalization)
  Sender: FDA-Public Use
  Company Number: DE-B.I. PHARMACEUTICALS,INC./RIDGEFIELD-2013-DE-01829DE

PATIENT
  Age: 88 Year
  Sex: Female
  Weight: 65 kg

DRUGS (6)
  1. PRADAXA [Suspect]
     Indication: ATRIAL FIBRILLATION
     Dosage: 220 MG
     Route: 048
     Dates: start: 201110, end: 20130701
  2. PRADAXA [Suspect]
     Indication: ATRIAL FIBRILLATION
  3. METOPROLOL SUC [Concomitant]
     Indication: ATRIAL FIBRILLATION
     Dosage: 190 MG
     Route: 048
     Dates: start: 200912
  4. NOVODIGAL [Concomitant]
     Indication: ATRIAL FIBRILLATION
     Dosage: 0.1 MG
     Route: 048
     Dates: start: 200912
  5. TORASEMID [Concomitant]
     Indication: ATRIAL FIBRILLATION
     Dosage: 10 MG
     Route: 048
     Dates: start: 200912
  6. MIRTAZOPIN [Concomitant]
     Indication: DEPRESSED MOOD
     Dosage: 15 MG
     Route: 048
     Dates: start: 200912

REACTIONS (1)
  - Hypercalcaemia [Recovered/Resolved]
